FAERS Safety Report 5192796-9 (Version None)
Quarter: 2006Q4

REPORT INFORMATION
  Report Type: 
  Country: None (occurrence: None)
  Receive Date: 20061228
  Receipt Date: 20061226
  Transmission Date: 20070319
  Serious: Yes (Other)
  Sender: FDA-Public Use
  Company Number: JP-BAYER-200611311BYL

PATIENT
  Age: 43 Year
  Sex: Female

DRUGS (4)
  1. AVELOX [Suspect]
     Indication: CHRONIC SINUSITIS
     Dosage: TOTAL DAILY DOSE: 400 MG  UNIT DOSE: 400 MG
     Route: 048
     Dates: start: 20061218, end: 20061219
  2. EMPYNASE [Suspect]
     Route: 048
     Dates: start: 20061218, end: 20061219
  3. ZYRTEC [Concomitant]
     Route: 048
  4. MUCODYNE [Concomitant]
     Route: 048

REACTIONS (2)
  - ECZEMA [None]
  - FACE OEDEMA [None]
